FAERS Safety Report 9104215 (Version 1)
Quarter: 2013Q1

REPORT INFORMATION
  Report Type: Spontaneous
  Country: FR (occurrence: FR)
  Receive Date: 20130219
  Receipt Date: 20130219
  Transmission Date: 20140127
  Serious: Yes (Death, Life-Threatening, Hospitalization)
  Sender: FDA-Public Use
  Company Number: FR-PFIZER INC-2013058387

PATIENT
  Age: 35 Year
  Sex: Female
  Weight: 50 kg

DRUGS (8)
  1. TRIFLUCAN [Suspect]
     Indication: GASTROINTESTINAL CANDIDIASIS
     Dosage: 400 MG, DAILY
     Dates: start: 20121215, end: 20121231
  2. STROMECTOL [Suspect]
     Indication: STRONGYLOIDIASIS
     Dosage: 12 MG, DAILY
     Route: 048
     Dates: start: 20121223, end: 20130107
  3. STROMECTOL [Suspect]
     Dosage: UNK
     Route: 054
     Dates: start: 20121223, end: 20130107
  4. STROMECTOL [Suspect]
     Dosage: 0.1 MG/KG, 2X/DAY
     Route: 058
     Dates: start: 20121223, end: 20130107
  5. BACTRIM [Concomitant]
     Indication: PNEUMOCYSTIS JIROVECII PNEUMONIA
     Dosage: 3600 MG, DAILY
     Dates: start: 20121215, end: 20121231
  6. CORTANCYL [Concomitant]
     Indication: PNEUMOCYSTIS JIROVECII PNEUMONIA
     Dosage: 1 MG/KG, DAILY
     Dates: start: 20121215, end: 20121231
  7. CYMEVAN [Concomitant]
     Indication: CYTOMEGALOVIRUS INFECTION
     Dosage: 250 MG, 2X/DAY
     Dates: start: 20121215, end: 20121231
  8. ALBENDAZOLE [Concomitant]
     Indication: STRONGYLOIDIASIS
     Dosage: 400 MG, DAILY
     Dates: start: 20130104, end: 20130107

REACTIONS (3)
  - Strongyloidiasis [Fatal]
  - Mixed liver injury [Recovering/Resolving]
  - Hyperbilirubinaemia [Not Recovered/Not Resolved]
